FAERS Safety Report 6727609-4 (Version None)
Quarter: 2010Q2

REPORT INFORMATION
  Report Type: 
  Country: None (occurrence: None)
  Receive Date: 20100517
  Receipt Date: 20100517
  Transmission Date: 20101027
  Serious: Yes (Other)
  Sender: FDA-Public Use
  Company Number: None

PATIENT
  Sex: Female
  Weight: 18.1439 kg

DRUGS (2)
  1. CHILDREN'S CETIRIZINE HYDROCHLORIDE ALLERGY [Suspect]
     Indication: FOOD ALLERGY
     Dosage: 1 TSP 5ML 1/ DAY PO
     Route: 048
     Dates: start: 20100501, end: 20100515
  2. CHILDREN'S CETIRIZINE HYDROCHLORIDE ALLERGY [Suspect]
     Indication: HYPERSENSITIVITY
     Dosage: 1 TSP 5ML 1/ DAY PO
     Route: 048
     Dates: start: 20100501, end: 20100515

REACTIONS (6)
  - CONDITION AGGRAVATED [None]
  - ECZEMA [None]
  - HYPERSENSITIVITY [None]
  - PRODUCT MEASURED POTENCY ISSUE [None]
  - PRODUCT QUALITY ISSUE [None]
  - PRODUCT SUBSTITUTION ISSUE [None]
